FAERS Safety Report 9260546 (Version 1)
Quarter: 2013Q2

REPORT INFORMATION
  Report Type: Spontaneous
  Country: FR (occurrence: FR)
  Receive Date: 20130429
  Receipt Date: 20130429
  Transmission Date: 20140414
  Serious: Yes (Hospitalization)
  Sender: FDA-Public Use
  Company Number: FR-SANOFI-AVENTIS-2013SA042093

PATIENT
  Age: 65 Year
  Sex: Male

DRUGS (10)
  1. LASILIX SPECIAL [Suspect]
     Indication: CARDIAC FAILURE
     Route: 048
     Dates: start: 20130225, end: 20130305
  2. LASILIX [Suspect]
     Indication: CARDIAC FAILURE
     Route: 048
     Dates: end: 20130305
  3. SPIRIVA [Concomitant]
     Route: 048
  4. LESCOL [Concomitant]
     Route: 048
  5. BRONCHODUAL [Concomitant]
     Dosage: DOSE:4 PUFF(S)
     Route: 055
  6. SERETIDE [Concomitant]
     Dosage: STRENGTH: 250/25MG DOSE:3 PUFF(S)
     Route: 055
  7. PLAVIX [Concomitant]
     Route: 048
  8. METFORMIN [Concomitant]
     Route: 048
  9. AMIODARONE [Concomitant]
     Route: 048
  10. DIGOXINE [Concomitant]
     Route: 048

REACTIONS (2)
  - Renal failure acute [Recovered/Resolved]
  - Hyperkalaemia [Recovered/Resolved]
